FAERS Safety Report 22185196 (Version 3)
Quarter: 2023Q4

REPORT INFORMATION
  Report Type: Spontaneous
  Country: US (occurrence: US)
  Receive Date: 20230407
  Receipt Date: 20231004
  Transmission Date: 20240110
  Serious: Yes (Other)
  Sender: FDA-Public Use
  Company Number: US-BRISTOL-MYERS SQUIBB COMPANY-2023-047192

PATIENT
  Age: 68 Year
  Sex: Female

DRUGS (2)
  1. LENALIDOMIDE [Suspect]
     Active Substance: LENALIDOMIDE
     Indication: Plasma cell myeloma
     Dosage: TAKE 1 CAPSULE BY MOUTH EVERY DAY FOR 21 DAYS, REST 7 DAYS, EVERY 28 DAYS
     Route: 048
     Dates: start: 20221028
  2. LENALIDOMIDE [Suspect]
     Active Substance: LENALIDOMIDE
     Dosage: TAKE 1 CAPSULE BY MOUTH EVERY DAY FOR 21 DAYS, REST 7 DAYS, EVERY 28 DAYS
     Route: 048

REACTIONS (3)
  - Gout [Recovered/Resolved]
  - Paranasal sinus hypersecretion [Recovering/Resolving]
  - Abdominal discomfort [Unknown]

NARRATIVE: CASE EVENT DATE: 20230801
